FAERS Safety Report 18996558 (Version 2)
Quarter: 2021Q1

REPORT INFORMATION
  Report Type: Spontaneous
  Country: PT (occurrence: PT)
  Receive Date: 20210311
  Receipt Date: 20210330
  Transmission Date: 20210420
  Serious: Yes (Life-Threatening, Other)
  Sender: FDA-Public Use
  Company Number: PT-SA-2021SA081879

PATIENT
  Age: 82 Year
  Sex: Female
  Weight: 70 kg

DRUGS (17)
  1. METAMIZOLE MAGNESIUM [Concomitant]
     Active Substance: METAMIZOLE MAGNESIUM
     Route: 040
  2. CEFTRIAXONE. [Concomitant]
     Active Substance: CEFTRIAXONE
     Dosage: 2000 MG
     Route: 040
  3. LANTUS [Concomitant]
     Active Substance: INSULIN GLARGINE
  4. SODIUM CHLORIDE. [Concomitant]
     Active Substance: SODIUM CHLORIDE
  5. ACETYLCYSTEINE. [Concomitant]
     Active Substance: ACETYLCYSTEINE
     Dosage: 600 MG
     Route: 048
  6. FUROSEMIDE. [Concomitant]
     Active Substance: FUROSEMIDE
     Dosage: 40 MG
     Route: 048
  7. PANTOPRAZOLE [Concomitant]
     Active Substance: PANTOPRAZOLE
     Dosage: 40 MG
     Route: 040
  8. ACTRAPID MC [Concomitant]
     Active Substance: INSULIN PORK\INSULIN PURIFIED PORK
  9. APIDRA [Concomitant]
     Active Substance: INSULIN GLULISINE
     Dosage: DRUG DOSAGE FORM: INJECTABLE SOLUTION
  10. ATROVENT PA [Concomitant]
     Active Substance: IPRATROPIUM BROMIDE
     Dosage: DRUG DOSAGE FORM: PRESSURIZED SOLUTION FOR INHALATION
     Route: 055
  11. NOVORAPID [Concomitant]
     Active Substance: INSULIN ASPART
  12. ENOXAPARIN SODIUM. [Suspect]
     Active Substance: ENOXAPARIN SODIUM
     Dosage: 60 MG 12/12H INJECTABLE SOLUTION IN PRE?FILLED SYRINGE,ATRIAL FIBRILLATION
     Route: 058
     Dates: start: 20210112, end: 20210202
  13. BISOPROLOL [Concomitant]
     Active Substance: BISOPROLOL
     Dosage: 2.5 MG
     Route: 048
  14. DOCUSATE;SORBITOL [Concomitant]
     Dosage: 67.5 ML
  15. METRONIDAZOLE. [Concomitant]
     Active Substance: METRONIDAZOLE
     Route: 040
  16. METOCLOPRAMIDE. [Concomitant]
     Active Substance: METOCLOPRAMIDE
     Dosage: 30 MG
     Route: 040
  17. ACTRAPID [Concomitant]
     Active Substance: INSULIN HUMAN
     Dosage: UNK
     Route: 065

REACTIONS (3)
  - Hypovolaemic shock [Recovered/Resolved]
  - Melaena [Recovered/Resolved]
  - Gastrointestinal haemorrhage [Recovered/Resolved]

NARRATIVE: CASE EVENT DATE: 20210128
